FAERS Safety Report 23325913 (Version 1)
Quarter: 2023Q4

REPORT INFORMATION
  Report Type: Report from Study
  Country: US (occurrence: US)
  Receive Date: 20231221
  Receipt Date: 20231221
  Transmission Date: 20240110
  Serious: Yes (Other)
  Sender: FDA-Public Use
  Company Number: US-GILEAD-2023-0653346

PATIENT
  Age: 32 Year
  Sex: Male

DRUGS (3)
  1. AMBRISENTAN [Suspect]
     Active Substance: AMBRISENTAN
     Indication: Pulmonary arterial hypertension
     Dosage: 5 MG, QD
     Route: 065
     Dates: start: 202212
  2. TYVASO [Suspect]
     Active Substance: TREPROSTINIL
     Indication: Pulmonary arterial hypertension
     Dosage: 1 DOSAGE FORM, QID
     Route: 055
     Dates: start: 202311
  3. TYVASO [Suspect]
     Active Substance: TREPROSTINIL
     Dosage: 1 DOSAGE FORM, QID
     Route: 055
     Dates: start: 202311

REACTIONS (8)
  - Multiple sclerosis [Unknown]
  - Myalgia [Unknown]
  - Depression [Not Recovered/Not Resolved]
  - Toothache [Unknown]
  - Peripheral swelling [Recovered/Resolved]
  - Headache [Not Recovered/Not Resolved]
  - Nausea [Not Recovered/Not Resolved]
  - Dyspnoea exertional [Not Recovered/Not Resolved]
